FAERS Safety Report 13194159 (Version 1)
Quarter: 2017Q1

REPORT INFORMATION
  Report Type: Report from Study
  Country: None (occurrence: DE)
  Receive Date: 20170207
  Receipt Date: 20170207
  Transmission Date: 20170428
  Serious: Yes (Other)
  Sender: FDA-Public Use
  Company Number: DE-ABBVIE-17P-062-1864834-00

PATIENT

DRUGS (1)
  1. DUODOPA [Suspect]
     Active Substance: CARBIDOPA\LEVODOPA
     Indication: PARKINSON^S DISEASE
     Dosage: MD 6.1ML, CRD 8.5ML/H, CRN 6.2ML/H, ED 2.8ML
     Route: 050
     Dates: start: 20061209

REACTIONS (1)
  - Arthropathy [Not Recovered/Not Resolved]
